FAERS Safety Report 8939359 (Version 2)
Quarter: 2012Q4

REPORT INFORMATION
  Report Type: 
  Country: JP (occurrence: JP)
  Receive Date: 20121203
  Receipt Date: 20121221
  Transmission Date: 20130627
  Serious: Yes (Other)
  Sender: FDA-Public Use
  Company Number: JP-JNJFOC-20121113731

PATIENT
  Age: 72 Year
  Sex: Male
  Weight: 59 kg

DRUGS (7)
  1. XARELTO [Suspect]
     Indication: CEREBROVASCULAR ACCIDENT PROPHYLAXIS
     Route: 048
     Dates: start: 201209
  2. ATELEC [Concomitant]
     Indication: HYPERTENSION
     Route: 048
     Dates: end: 20121119
  3. PREDNISOLONE [Concomitant]
     Indication: SYSTEMIC LUPUS ERYTHEMATOSUS
     Route: 048
  4. TAKEPRON [Concomitant]
     Indication: GASTROOESOPHAGEAL REFLUX DISEASE
     Route: 048
  5. LASIX [Concomitant]
     Indication: CARDIAC FAILURE
     Route: 048
  6. MUCODYNE [Concomitant]
     Indication: PRODUCTIVE COUGH
     Route: 048
  7. HOKUNALIN [Concomitant]
     Indication: CHRONIC OBSTRUCTIVE PULMONARY DISEASE
     Route: 062

REACTIONS (2)
  - Embolic stroke [Recovered/Resolved]
  - Drug ineffective [Unknown]
